FAERS Safety Report 20245203 (Version 1)
Quarter: 2021Q4

REPORT INFORMATION
  Report Type: Spontaneous
  Country: US (occurrence: US)
  Receive Date: 20211229
  Receipt Date: 20211229
  Transmission Date: 20220304
  Serious: No
  Sender: FDA-Public Use
  Company Number: US-GLENMARK PHARMACEUTICALS-2021GMK068375

PATIENT

DRUGS (2)
  1. MOMETASONE FUROATE [Suspect]
     Active Substance: MOMETASONE FUROATE
     Indication: Psoriasis
     Dosage: UNK
     Route: 065
  2. MOMETASONE FUROATE [Suspect]
     Active Substance: MOMETASONE FUROATE
     Indication: Fungal skin infection

REACTIONS (7)
  - Product use in unapproved indication [Unknown]
  - Product dispensing error [Unknown]
  - Expired product administered [Unknown]
  - Application site erythema [Unknown]
  - Application site pain [Unknown]
  - Pruritus [Unknown]
  - Product odour abnormal [Unknown]
